FAERS Safety Report 13532327 (Version 1)
Quarter: 2017Q2

REPORT INFORMATION
  Report Type: Other
  Country: US (occurrence: GB)
  Receive Date: 20170510
  Receipt Date: 20170510
  Transmission Date: 20170830
  Serious: Yes (Other)
  Sender: FDA-Public Use
  Company Number: GB-BRECKENRIDGE PHARMACEUTICAL, INC.-2020527

PATIENT
  Age: 59 Year
  Sex: Female

DRUGS (1)
  1. LEVETIRACETAM. [Suspect]
     Active Substance: LEVETIRACETAM
     Indication: PETIT MAL EPILEPSY

REACTIONS (1)
  - Eosinophilic pneumonia [Recovered/Resolved]
